FAERS Safety Report 4803656-4 (Version None)
Quarter: 2005Q4

REPORT INFORMATION
  Report Type: 
  Country: None (occurrence: None)
  Receive Date: 20051014
  Receipt Date: 20051007
  Transmission Date: 20060501
  Serious: Yes (Other)
  Sender: FDA-Public Use
  Company Number: GXKR2005PL01765

PATIENT
  Age: 24 Year
  Sex: Male
  Weight: 70 kg

DRUGS (1)
  1. XORIM (NGX)(CEFUROXIME) POWDER FOR SOL FOR INJ [Suspect]
     Indication: BRONCHITIS
     Dosage: 1 G,ONCE/SINGLE, INTRAMUSCULAR
     Route: 030
     Dates: start: 20051004, end: 20051004

REACTIONS (6)
  - HEADACHE [None]
  - HYPERHIDROSIS [None]
  - PAIN IN EXTREMITY [None]
  - PALLOR [None]
  - PALPITATIONS [None]
  - SYNCOPE [None]
